FAERS Safety Report 25366316 (Version 3)
Quarter: 2025Q2

REPORT INFORMATION
  Report Type: Report from Study
  Country: US (occurrence: US)
  Receive Date: 20250528
  Receipt Date: 20250630
  Transmission Date: 20250717
  Serious: Yes (Other)
  Sender: STALLERGENES
  Company Number: US-STALCOR-2025-AER-01967

PATIENT
  Age: 17 Year
  Sex: Male

DRUGS (6)
  1. PALFORZIA [Suspect]
     Active Substance: PEANUT
     Indication: Food allergy
     Dosage: REACTIVE DOSE AT TIME OF SAE ONSET
     Route: 048
     Dates: start: 20250415
  2. PALFORZIA [Suspect]
     Active Substance: PEANUT
     Dosage: SPLIT DOSE OF 100MG (50MG, WAIT 20MIN, THEN OTHER 50MG) AND FULL 100MG THEREAFTER. HE HAS BEEN TOLER
     Route: 048
     Dates: start: 20250418
  3. BENADRYL ALLERGY [Concomitant]
     Active Substance: DIPHENHYDRAMINE HYDROCHLORIDE
     Indication: Hypersensitivity
  4. SYMBICORT [Concomitant]
     Active Substance: BUDESONIDE\FORMOTEROL FUMARATE DIHYDRATE
     Indication: Asthma
     Dosage: 80MCG-4.5MCG 2 PUFFS TWICE DAILY (ALSO HAS 160-4.5MCG AT HOME AS NEEDED)
     Route: 055
  5. SYMBICORT [Concomitant]
     Active Substance: BUDESONIDE\FORMOTEROL FUMARATE DIHYDRATE
     Dosage: 80MCG-4.5MCG 2 PUFFS TWICE DAILY (ALSO HAS 160-4.5MCG AT HOME AS NEEDED)
     Route: 055
  6. EPIPEN [Concomitant]
     Active Substance: EPINEPHRINE
     Indication: Prophylaxis

REACTIONS (8)
  - Anaphylactic reaction [Recovered/Resolved]
  - Rash [Recovered/Resolved]
  - Pruritus [Recovered/Resolved]
  - Dyspnoea [Recovered/Resolved]
  - Nasal congestion [Recovered/Resolved]
  - Sneezing [Recovered/Resolved]
  - Wheezing [Recovered/Resolved]
  - Therapy interrupted [Recovered/Resolved]

NARRATIVE: CASE EVENT DATE: 20250415
